FAERS Safety Report 11319404 (Version 1)
Quarter: 2015Q3

REPORT INFORMATION
  Report Type: Spontaneous
  Country: US (occurrence: None)
  Receive Date: 20150727
  Receipt Date: 20150727
  Transmission Date: 20151125
  Serious: Yes (Other)
  Sender: FDA-Public Use
  Company Number: None

PATIENT
  Age: 44 Year
  Sex: Female
  Weight: 66.23 kg

DRUGS (6)
  1. ZYRTEC [Concomitant]
     Active Substance: CETIRIZINE HYDROCHLORIDE
  2. RANITIDINE [Concomitant]
     Active Substance: RANITIDINE\RANITIDINE HYDROCHLORIDE
  3. ALBUTEROL INHALER [Concomitant]
     Active Substance: ALBUTEROL
  4. FLONASE [Concomitant]
     Active Substance: FLUTICASONE PROPIONATE
  5. DOXYCYCLINE. [Suspect]
     Active Substance: DOXYCYCLINE
     Indication: SINUSITIS
     Route: 048
     Dates: start: 20150720, end: 20150722
  6. MULTIVITAMINS [Concomitant]
     Active Substance: VITAMINS

REACTIONS (10)
  - Flatulence [None]
  - Abdominal distension [None]
  - Tremor [None]
  - Anxiety [None]
  - Chest discomfort [None]
  - Panic attack [None]
  - Restlessness [None]
  - Heart rate increased [None]
  - Feeling jittery [None]
  - Oesophageal obstruction [None]

NARRATIVE: CASE EVENT DATE: 20150721
